FAERS Safety Report 22350954 (Version 1)
Quarter: 2023Q2

REPORT INFORMATION
  Report Type: Spontaneous
  Country: US (occurrence: None)
  Receive Date: 20230520
  Receipt Date: 20230520
  Transmission Date: 20230721
  Serious: Yes (Other)
  Sender: FDA-Public Use
  Company Number: None

PATIENT

DRUGS (2)
  1. TROPICAMIDE [Suspect]
     Active Substance: TROPICAMIDE
     Dosage: 15 ML
  2. TROPICAMIDE [Suspect]
     Active Substance: TROPICAMIDE

REACTIONS (3)
  - Product label confusion [None]
  - Product label issue [None]
  - Product dispensing error [None]

NARRATIVE: CASE EVENT DATE: 20230520
